FAERS Safety Report 10167405 (Version 1)
Quarter: 2014Q2

REPORT INFORMATION
  Report Type: Spontaneous
  Country: US (occurrence: None)
  Receive Date: 20140509
  Receipt Date: 20140509
  Transmission Date: 20141212
  Serious: Yes (Other)
  Sender: FDA-Public Use
  Company Number: None

PATIENT
  Age: 57 Year
  Sex: Female
  Weight: 62.96 kg

DRUGS (2)
  1. XYLOCAINE WITH EPINEPHRINE [Suspect]
     Indication: SKIN LESION
     Route: 058
     Dates: start: 20140313
  2. XYLOCAINE WITH EPINEPHRINE [Suspect]
     Route: 058
     Dates: start: 20140313

REACTIONS (1)
  - Anaesthetic complication [None]
